FAERS Safety Report 5691693-X (Version None)
Quarter: 2008Q2

REPORT INFORMATION
  Report Type: 
  Country: None (occurrence: None)
  Receive Date: 20080402
  Receipt Date: 20061120
  Transmission Date: 20081010
  Serious: Yes (Death)
  Sender: FDA-Public Use
  Company Number: US-ROCHE-472275

PATIENT
  Age: 56 Year
  Sex: Male
  Weight: 72.6 kg

DRUGS (3)
  1. CAPECITABINE [Suspect]
     Dosage: 3 TABLETS IN THE MORNING AND 2 TABLETS IN THE EVENING.
     Route: 048
     Dates: start: 20060926, end: 20061009
  2. CAPECITABINE [Suspect]
     Route: 048
     Dates: start: 20061024
  3. GEMZAR [Concomitant]
     Dosage: STRENGTH WAS REPORTED AS 1800MG 1500MG.
     Route: 042
     Dates: start: 20060926, end: 20061012

REACTIONS (1)
  - DISEASE PROGRESSION [None]
